FAERS Safety Report 5601337-0 (Version None)
Quarter: 2008Q1

REPORT INFORMATION
  Report Type: 
  Country: None (occurrence: None)
  Receive Date: 20080122
  Receipt Date: 20080122
  Transmission Date: 20080703
  Serious: Yes (Life-Threatening, Hospitalization, Other)
  Sender: FDA-Public Use
  Company Number: None

PATIENT
  Age: 20 Year
  Sex: Female
  Weight: 51.2565 kg

DRUGS (1)
  1. DEPO-PROVERA [Suspect]
     Indication: CONTRACEPTION
     Dosage: 150ML 3 MONTHS IM FROM FALL 2004 EVERY 3MTS
     Route: 030

REACTIONS (16)
  - ABNORMAL BEHAVIOUR [None]
  - AGGRESSION [None]
  - ALOPECIA [None]
  - AMENORRHOEA [None]
  - ANXIETY [None]
  - ARTHRALGIA [None]
  - BIPOLAR DISORDER [None]
  - BLOOD CALCIUM DECREASED [None]
  - DENTAL CARIES [None]
  - FATIGUE [None]
  - INSOMNIA [None]
  - LOSS OF EMPLOYMENT [None]
  - MOOD ALTERED [None]
  - MOOD SWINGS [None]
  - PAIN [None]
  - WEIGHT INCREASED [None]
